FAERS Safety Report 24541090 (Version 1)
Quarter: 2024Q4

REPORT INFORMATION
  Report Type: Spontaneous
  Country: US (occurrence: US)
  Receive Date: 20241023
  Receipt Date: 20241023
  Transmission Date: 20250114
  Serious: No
  Sender: PFIZER
  Company Number: US-PFIZER INC-202400282420

PATIENT
  Age: 56 Year
  Sex: Female

DRUGS (1)
  1. IBRANCE [Suspect]
     Active Substance: PALBOCICLIB
     Dosage: 1 TABLET DAILY FOR 21 DAYS THEN OFF FOR 7 DAYS
     Dates: start: 202402

REACTIONS (3)
  - Migraine [Not Recovered/Not Resolved]
  - Fall [Unknown]
  - Contrast media allergy [Not Recovered/Not Resolved]
